FAERS Safety Report 7910798-3 (Version None)
Quarter: 2011Q4

REPORT INFORMATION
  Report Type: 
  Country: None (occurrence: None)
  Receive Date: 20111113
  Receipt Date: 20111110
  Transmission Date: 20120403
  Serious: Yes (Death, Hospitalization, Other)
  Sender: FDA-Public Use
  Company Number: US-BRISTOL-MYERS SQUIBB COMPANY-15916299

PATIENT
  Age: 72 Year
  Sex: Male
  Weight: 80 kg

DRUGS (6)
  1. INSULIN [Concomitant]
  2. HYDROCHLOROTHIAZIDE [Concomitant]
  3. LANTUS [Concomitant]
  4. SYNTHROID [Concomitant]
  5. IPILIMUMAB [Suspect]
     Indication: MALIGNANT MELANOMA
     Dosage: CYCLE 21DAYS,10MG/KG OVER 90 MIN ON DAY 1,1 Q 12 WEEKS,LAST DOSE ON 06JUL11
     Route: 042
     Dates: start: 20110427
  6. LISINOPRIL [Concomitant]

REACTIONS (11)
  - WHITE BLOOD CELL COUNT DECREASED [None]
  - MULTI-ORGAN FAILURE [None]
  - FEBRILE NEUTROPENIA [None]
  - INAPPROPRIATE ANTIDIURETIC HORMONE SECRETION [None]
  - HYPONATRAEMIA [None]
  - PLATELET COUNT DECREASED [None]
  - PANCYTOPENIA [None]
  - LYMPHOCYTE COUNT DECREASED [None]
  - NEUTROPHIL COUNT DECREASED [None]
  - HYPOTENSION [None]
  - HYPOALBUMINAEMIA [None]
